FAERS Safety Report 8899633 (Version 1)
Quarter: 2012Q4

REPORT INFORMATION
  Report Type: Report from Study
  Country: CA (occurrence: CA)
  Receive Date: 20121109
  Receipt Date: 20121109
  Transmission Date: 20130627
  Serious: Yes (Other)
  Sender: FDA-Public Use
  Company Number: CA-JNJFOC-20121100260

PATIENT
  Sex: Male
  Weight: 79.1 kg

DRUGS (3)
  1. REMICADE [Suspect]
     Indication: PSORIASIS
     Route: 042
     Dates: start: 20070105
  2. REMICADE [Suspect]
     Indication: PSORIASIS
     Dosage: 38th infusion
     Route: 042
     Dates: start: 20120831
  3. DOVONEX [Concomitant]
     Route: 061

REACTIONS (2)
  - Cough [Unknown]
  - Muscle strain [Not Recovered/Not Resolved]
